FAERS Safety Report 14431174 (Version 3)
Quarter: 2018Q4

REPORT INFORMATION
  Report Type: Report from Study
  Country: None (occurrence: US)
  Receive Date: 20180124
  Receipt Date: 20181226
  Transmission Date: 20190204
  Serious: Yes (Hospitalization, Other)
  Sender: FDA-Public Use
  Company Number: US-ABBVIE-18K-163-2232559-00

PATIENT
  Sex: Male

DRUGS (1)
  1. HUMIRA [Suspect]
     Active Substance: ADALIMUMAB
     Indication: PSORIASIS
     Route: 058

REACTIONS (8)
  - Appendicitis perforated [Unknown]
  - Fungal infection [Unknown]
  - Arthritis [Unknown]
  - Tendonitis [Unknown]
  - Ear infection [Unknown]
  - Hernia [Unknown]
  - Rotator cuff syndrome [Unknown]
  - Appendicitis [Unknown]
